FAERS Safety Report 4733468-1 (Version None)
Quarter: 2005Q3

REPORT INFORMATION
  Report Type: 
  Country: None (occurrence: None)
  Receive Date: 20050801
  Receipt Date: 20050801
  Transmission Date: 20060218
  Serious: Yes (Hospitalization)
  Sender: FDA-Public Use
  Company Number: None

PATIENT
  Age: 63 Year

DRUGS (10)
  1. FUROSEMIDE [Suspect]
     Indication: HYPERTENSION
     Dosage: 40MG BID
     Dates: start: 19980601
  2. ENALAPRIL [Suspect]
     Indication: HYPERTENSION
     Dosage: 40MG QD
     Dates: start: 20050401
  3. COSYNTROPIN [Concomitant]
  4. LORTAB [Concomitant]
  5. RISEDRONATE [Concomitant]
  6. ISOSORBIDE [Concomitant]
  7. ZOCOR [Concomitant]
  8. TERAZOSIN [Concomitant]
  9. VASLARTAN [Concomitant]
  10. ADALAT [Concomitant]

REACTIONS (1)
  - SYNCOPE [None]
